FAERS Safety Report 5107088-3 (Version None)
Quarter: 2006Q3

REPORT INFORMATION
  Report Type: 
  Country: None (occurrence: None)
  Receive Date: 20060918
  Receipt Date: 20060906
  Transmission Date: 20061208
  Serious: Yes (Hospitalization)
  Sender: FDA-Public Use
  Company Number: US-GILEAD-2006-0010198

PATIENT
  Age: 43 Year
  Sex: Male
  Weight: 83.5 kg

DRUGS (5)
  1. TRUVADA [Suspect]
     Indication: HIV INFECTION
     Route: 048
     Dates: start: 20060710
  2. SUSTIVA [Concomitant]
     Indication: HIV INFECTION
     Dates: start: 20060710
  3. VALACYCLOVIOR [Concomitant]
     Dates: start: 20060613
  4. LEVOTHYROXINE SODIUM [Concomitant]
     Dates: start: 19840101
  5. BACTRIM [Concomitant]
     Dates: start: 20060525

REACTIONS (1)
  - RETROPHARYNGEAL ABSCESS [None]
